FAERS Safety Report 24444702 (Version 2)
Quarter: 2024Q4

REPORT INFORMATION
  Report Type: Report from Study
  Country: US (occurrence: US)
  Receive Date: 20241016
  Receipt Date: 20241017
  Transmission Date: 20250115
  Serious: No
  Sender: ROCHE
  Company Number: US-ROCHE-2934903

PATIENT
  Age: 63 Year
  Sex: Female

DRUGS (1)
  1. RITUXAN [Suspect]
     Active Substance: RITUXIMAB
     Indication: Nervous system disorder
     Dosage: VIAL, STRENGTH: 10 MG/ML,  INFUSE 1000 MG (DATE OF TREATMENT: 11/OCT/2021, 02/APR/2021, 19/MAR/2021,
     Route: 065
     Dates: start: 20211011

REACTIONS (2)
  - Off label use [Unknown]
  - No adverse event [Unknown]
